FAERS Safety Report 6186462-0 (Version None)
Quarter: 2009Q2

REPORT INFORMATION
  Report Type: 
  Country: None (occurrence: None)
  Receive Date: 20090511
  Receipt Date: 20090424
  Transmission Date: 20091009
  Serious: Yes (Hospitalization)
  Sender: FDA-Public Use
  Company Number: FR-GENENTECH-279646

PATIENT
  Sex: Male

DRUGS (7)
  1. AVASTIN [Suspect]
     Indication: COLORECTAL CANCER METASTATIC
     Dosage: 315 MG, UNK
     Route: 042
     Dates: start: 20081125, end: 20090204
  2. KYTRIL [Suspect]
     Indication: COLORECTAL CANCER METASTATIC
     Dosage: 3 UNK, UNK
     Route: 042
     Dates: start: 20081125, end: 20090210
  3. SOLU-MEDROL [Suspect]
     Indication: COLORECTAL CANCER
     Dosage: 80 MG, UNK
     Route: 042
     Dates: start: 20081125, end: 20090210
  4. CAMPTOSAR [Suspect]
     Indication: COLORECTAL CANCER METASTATIC
     Dosage: 303 MG, UNK
     Route: 042
     Dates: start: 20081125, end: 20090210
  5. FLUOROURACIL [Suspect]
     Indication: DRUG USE FOR UNKNOWN INDICATION
     Dosage: 4046 UNK, UNK
     Route: 042
     Dates: start: 20081125, end: 20090210
  6. ELVORINE [Suspect]
     Indication: DRUG USE FOR UNKNOWN INDICATION
     Dosage: UNK
     Route: 042
     Dates: start: 20081125, end: 20090201
  7. PARIET [Concomitant]
     Indication: DRUG USE FOR UNKNOWN INDICATION

REACTIONS (3)
  - GENERAL PHYSICAL HEALTH DETERIORATION [None]
  - ISCHAEMIC STROKE [None]
  - MALAISE [None]
